FAERS Safety Report 8544741-3 (Version None)
Quarter: 2012Q3

REPORT INFORMATION
  Report Type: 
  Country: None (occurrence: None)
  Receive Date: 20120727
  Receipt Date: 20120718
  Transmission Date: 20120928
  Serious: Yes (Other)
  Sender: FDA-Public Use
  Company Number: FR-BRISTOL-MYERS SQUIBB COMPANY-15941412

PATIENT
  Age: 39 Year
  Sex: Female
  Weight: 80 kg

DRUGS (4)
  1. ABILIFY [Suspect]
     Indication: SCHIZOPHRENIA
     Route: 048
  2. RISPERDAL [Suspect]
     Indication: SCHIZOPHRENIA
     Dosage: PERIOD OF EXPOSURE: 0-4 ROUTE: 4 IM
     Route: 030
  3. VALIUM [Suspect]
     Indication: ANXIOLYTIC THERAPY
     Route: 048
  4. CHLORPROMAZINE HCL [Suspect]
     Indication: ANXIOLYTIC THERAPY
     Route: 048

REACTIONS (4)
  - PREGNANCY [None]
  - GESTATIONAL DIABETES [None]
  - OLIGOHYDRAMNIOS [None]
  - NORMAL NEWBORN [None]
